FAERS Safety Report 10379515 (Version 1)
Quarter: 2014Q3

REPORT INFORMATION
  Report Type: Spontaneous
  Country: DE (occurrence: None)
  Receive Date: 20140808
  Receipt Date: 20140808
  Transmission Date: 20150326
  Serious: Yes (Other)
  Sender: FDA-Public Use
  Company Number: 2014DE00995

PATIENT

DRUGS (5)
  1. OXALIPLATIN. [Suspect]
     Active Substance: OXALIPLATIN
     Indication: COLORECTAL CANCER METASTATIC
     Dosage: 85MG/M2, 2 H, BIWEEKLY, INTRAVENOUS
     Route: 042
  2. FOLINIC ACID [Suspect]
     Active Substance: LEUCOVORIN
     Indication: COLORECTAL CANCER METASTATIC
     Dosage: 400MG/M2 2H BIWEEKLY INTRAVENOUS
     Route: 042
  3. CETUXIMAB [Suspect]
     Active Substance: CETUXIMAB
     Indication: COLORECTAL CANCER METASTATIC
     Dosage: 500MG/M2, 2H, BIWEEKLY INTRAVENOUS
     Route: 042
  4. IRINOTECAN [Suspect]
     Active Substance: IRINOTECAN
     Indication: COLORECTAL CANCER METASTATIC
     Dosage: 95MG/M2 BIWEEKLY INTRAVENOUS
     Route: 042
  5. 5-FU [Suspect]
     Active Substance: FLUOROURACIL
     Dosage: 3200MG/M2, 46H, BIWEEKLY, INTRAVENOUS
     Route: 042

REACTIONS (1)
  - Skin toxicity [None]
